FAERS Safety Report 20230346 (Version 3)
Quarter: 2022Q1

REPORT INFORMATION
  Report Type: Spontaneous
  Country: AR (occurrence: AR)
  Receive Date: 20211227
  Receipt Date: 20220205
  Transmission Date: 20220424
  Serious: Yes (Hospitalization, Other)
  Sender: FDA-Public Use
  Company Number: AR-AUROBINDO-AUR-APL-2021-049986

PATIENT
  Age: 47 Year
  Sex: Male

DRUGS (1)
  1. BELEODAQ [Suspect]
     Active Substance: BELINOSTAT
     Indication: Non-Hodgkin^s lymphoma
     Dosage: 1700 MG/M2
     Route: 065
     Dates: start: 20210803

REACTIONS (12)
  - COVID-19 [Unknown]
  - Cellulitis [Recovering/Resolving]
  - Rectal haemorrhage [Unknown]
  - Diarrhoea [Unknown]
  - Myalgia [Unknown]
  - Haemorrhoids [Unknown]
  - Pyrexia [Unknown]
  - Anaemia [Unknown]
  - Cough [Unknown]
  - Insurance issue [Not Recovered/Not Resolved]
  - Gait inability [Recovering/Resolving]
  - Pain [Unknown]

NARRATIVE: CASE EVENT DATE: 20211024
